FAERS Safety Report 17807010 (Version 2)
Quarter: 2020Q2

REPORT INFORMATION
  Report Type: Spontaneous
  Country: US (occurrence: US)
  Receive Date: 20200520
  Receipt Date: 20200527
  Transmission Date: 20200714
  Serious: Yes (Hospitalization, Other)
  Sender: FDA-Public Use
  Company Number: US-PFIZER INC-2019284402

PATIENT
  Age: 74 Year
  Sex: Female
  Weight: 39 kg

DRUGS (1)
  1. SUTENT [Suspect]
     Active Substance: SUNITINIB MALATE
     Indication: GASTROINTESTINAL STROMAL TUMOUR
     Dosage: 25 MG, CYCLIC (25 MG, DAILY (4 WEEKS ON 1 WEEK OFF))
     Route: 048

REACTIONS (1)
  - Cardiac failure [Unknown]
